FAERS Safety Report 7250751-9 (Version None)
Quarter: 2011Q1

REPORT INFORMATION
  Report Type: 
  Country: None (occurrence: None)
  Receive Date: 20110128
  Receipt Date: 20110121
  Transmission Date: 20110831
  Serious: Yes (Other)
  Sender: FDA-Public Use
  Company Number: PHHO2011GR01504

PATIENT
  Sex: Female
  Weight: 37.4 kg

DRUGS (5)
  1. ACZ885 [Suspect]
     Indication: JUVENILE ARTHRITIS
  2. BLINDED PLACEBO [Suspect]
     Indication: JUVENILE ARTHRITIS
     Dosage: 150 MG, QW4
     Route: 058
     Dates: start: 20101019
  3. METHOTREXATE [Suspect]
     Indication: JUVENILE ARTHRITIS
     Dosage: UNK
     Dates: start: 20060104, end: 20110121
  4. BLINDED ACZ885 [Suspect]
     Indication: JUVENILE ARTHRITIS
     Dosage: 150 MG, QW4
     Route: 058
     Dates: start: 20101019
  5. BLINDED NO TREATMENT RECEIVED [Suspect]
     Indication: JUVENILE ARTHRITIS
     Dosage: 150 MG, QW4
     Route: 058
     Dates: start: 20101019

REACTIONS (4)
  - UPPER RESPIRATORY TRACT INFECTION [None]
  - PHARYNGITIS [None]
  - COUGH [None]
  - HEPATIC ENZYME INCREASED [None]
